APPROVED DRUG PRODUCT: PREGABALIN
Active Ingredient: PREGABALIN
Strength: 150MG
Dosage Form/Route: CAPSULE;ORAL
Application: A091228 | Product #005
Applicant: PHARMOBEDIENT CONSULTING LLC
Approved: Sep 20, 2019 | RLD: No | RS: No | Type: DISCN